FAERS Safety Report 10496507 (Version 2)
Quarter: 2018Q1

REPORT INFORMATION
  Report Type: Spontaneous
  Country: CA (occurrence: CA)
  Receive Date: 20141004
  Receipt Date: 20180213
  Transmission Date: 20180508
  Serious: Yes (Other)
  Sender: FDA-Public Use
  Company Number: CA-009507513-1409CAN015505

PATIENT
  Age: 28 Year
  Sex: Female

DRUGS (6)
  1. IMOVANE [Concomitant]
     Active Substance: ZOPICLONE
     Dosage: 7.5 MG, PO OD PRN
     Route: 048
     Dates: start: 20131024
  2. AMITRIPTYLINE HYDROCHLORIDE. [Concomitant]
     Active Substance: AMITRIPTYLINE HYDROCHLORIDE
     Dosage: QHS 1 IN AM AND 1 IN PM
     Route: 048
     Dates: start: 20140131
  3. NASONEX [Suspect]
     Active Substance: MOMETASONE FUROATE
     Indication: SINUSITIS
     Dosage: 2 SPRAYS EACH NOSTRIL EVERY 1-2 HOURS FOR 1 WEEK
     Route: 045
     Dates: start: 20140130, end: 20140206
  4. DIFLUCAN [Concomitant]
     Active Substance: FLUCONAZOLE
     Dosage: 150 MG PO DAILY X 1/52
     Route: 048
     Dates: start: 20140206, end: 20140213
  5. ANAPROX [Concomitant]
     Active Substance: NAPROXEN SODIUM
     Indication: PELVIC PAIN
     Dosage: 1 PO TID
     Route: 048
     Dates: start: 20131121
  6. MIRENA [Concomitant]
     Active Substance: LEVONORGESTREL
     Dosage: 52 MG, INTU OD
     Route: 015
     Dates: start: 20131024

REACTIONS (3)
  - Fungal rhinitis [Unknown]
  - Sinusitis fungal [Unknown]
  - Wrong drug administered [Unknown]

NARRATIVE: CASE EVENT DATE: 20140130
